FAERS Safety Report 6348676-6 (Version None)
Quarter: 2009Q3

REPORT INFORMATION
  Report Type: 
  Country: None (occurrence: None)
  Receive Date: 20090911
  Receipt Date: 20090831
  Transmission Date: 20100115
  Serious: Yes (Hospitalization, Other)
  Sender: FDA-Public Use
  Company Number: US-PFIZER INC-2009202593

PATIENT
  Sex: Female
  Weight: 49.895 kg

DRUGS (21)
  1. GABAPENTIN [Suspect]
     Indication: VULVOVAGINAL PAIN
     Dosage: 300 MG, 3X/DAY
     Dates: start: 20090101, end: 20090101
  2. CHANTIX [Suspect]
     Indication: SMOKING CESSATION THERAPY
     Dosage: 1 MG, 2X/DAY
     Route: 048
     Dates: start: 20090401, end: 20090624
  3. CHANTIX [Suspect]
     Dosage: 0.5 MG, 1X/DAY
     Route: 048
     Dates: start: 20090421
  4. CHANTIX [Suspect]
     Dosage: 0.5 MG, 2X/DAY
     Route: 048
     Dates: start: 20090401
  5. REMERON [Suspect]
     Indication: DEPRESSION
     Dosage: 30 MG, 1X/DAY
     Route: 048
  6. REMERON [Suspect]
     Route: 048
  7. PROMETHAZINE [Concomitant]
     Indication: NAUSEA
     Dosage: 25 MG, UNK
  8. EFFEXOR [Concomitant]
     Indication: DEPRESSION
     Dosage: 200 MG, 1X/DAY
     Route: 048
  9. ACETYLSALICYLIC ACID [Concomitant]
     Dosage: 325 MG, 1X/DAY
  10. LIPITOR [Concomitant]
     Indication: BLOOD CHOLESTEROL INCREASED
     Dosage: 80 MG, UNK
  11. SITAGLIPTIN PHOSPHATE [Concomitant]
     Indication: DIABETES MELLITUS
     Dosage: 50 MG, UNK
     Route: 048
  12. CLONAZEPAM [Concomitant]
     Indication: NERVOUSNESS
     Dosage: 1 MG, UNK
  13. CLONAZEPAM [Concomitant]
     Route: 048
  14. TRICOR [Concomitant]
     Dosage: 48 MG, UNK
  15. LANSOPRAZOLE [Concomitant]
     Indication: GASTROOESOPHAGEAL REFLUX DISEASE
     Dosage: 500 MG, UNK
  16. LAMICTAL [Concomitant]
     Indication: DEPRESSION
     Dosage: 300 MG, UNK
     Route: 048
  17. LAMICTAL [Concomitant]
     Route: 048
  18. LISINOPRIL [Concomitant]
     Dosage: UNK
     Route: 048
  19. CORRECTOL LAXATIVE [Concomitant]
     Dosage: UNIT DOSE: 1;
  20. PROTONIX [Concomitant]
  21. PRAVACHOL [Concomitant]

REACTIONS (9)
  - ATAXIA [None]
  - CAROTID ARTERY STENOSIS [None]
  - CENTRAL NERVOUS SYSTEM LESION [None]
  - CONFUSIONAL STATE [None]
  - COORDINATION ABNORMAL [None]
  - HOMICIDAL IDEATION [None]
  - IMPAIRED GASTRIC EMPTYING [None]
  - LOSS OF CONSCIOUSNESS [None]
  - SUICIDAL IDEATION [None]
